FAERS Safety Report 8949928 (Version 1)
Quarter: 2012Q4

REPORT INFORMATION
  Report Type: 
  Country: US (occurrence: US)
  Receive Date: 20121205
  Receipt Date: 20121205
  Transmission Date: 20130627
  Serious: Yes (Other)
  Sender: FDA-Public Use
  Company Number: US-009507513-1212USA000898

PATIENT
  Sex: Male
  Weight: 126.98 kg

DRUGS (18)
  1. JANUMET [Suspect]
     Indication: TYPE 2 DIABETES MELLITUS
     Dosage: 50/1000 mg, bid
     Route: 048
     Dates: end: 2012
  2. CHANTIX [Suspect]
     Indication: SMOKING CESSATION THERAPY
     Dosage: 0.5 mg, qd
     Route: 048
     Dates: start: 2008, end: 2008
  3. CHANTIX [Suspect]
     Dosage: 0.5 mg, qd
     Route: 048
     Dates: start: 2009
  4. GLIPIZIDE [Suspect]
     Indication: TYPE 2 DIABETES MELLITUS
     Dosage: 10 mg, qd
     Dates: end: 2012
  5. METOPROLOL [Concomitant]
     Indication: HYPERTENSION
     Dosage: 25 mg, qd
  6. LISINOPRIL [Concomitant]
     Indication: HYPERTENSION
     Dosage: 20 mg, qd
     Route: 048
  7. OXYCODONE [Concomitant]
     Indication: BACK DISORDER
     Dosage: 15 mg, q4h
     Route: 048
  8. OXYCODONE [Concomitant]
     Indication: MUSCULOSKELETAL DISCOMFORT
  9. OXYCODONE [Concomitant]
     Indication: ARTHROPATHY
  10. OXYCODONE [Concomitant]
     Indication: MUSCULOSKELETAL DISCOMFORT
  11. VITAMIN D (UNSPECIFIED) [Concomitant]
     Dosage: UNK, qd
  12. NATURES BOUNTY FISH OIL [Concomitant]
     Dosage: 1200 IU, qd
  13. ASPIRIN [Concomitant]
     Dosage: UNK, qd
  14. ONE-A-DAY ESSENTIAL VITAMINS [Concomitant]
     Dosage: UNK, qd
  15. CYCLOBENZAPRINE HYDROCHLORIDE [Concomitant]
     Dosage: 10 mg, qd
  16. TESTOSTERONE [Concomitant]
     Indication: BLOOD TESTOSTERONE DECREASED
     Dosage: UNK
  17. LEVEMIR [Concomitant]
     Dosage: 52 IU, qd
     Dates: start: 201207
  18. CRESTOR [Concomitant]
     Indication: BLOOD CHOLESTEROL INCREASED
     Dosage: 20 mg, qd
     Dates: start: 201205

REACTIONS (2)
  - Surgery [Unknown]
  - Drug ineffective [Unknown]
